FAERS Safety Report 10375739 (Version 1)
Quarter: 2014Q3

REPORT INFORMATION
  Report Type: Spontaneous
  Country: US (occurrence: None)
  Receive Date: 20140804
  Receipt Date: 20140804
  Transmission Date: 20150326
  Serious: Yes (Hospitalization)
  Sender: FDA-Public Use
  Company Number: 1224850-2013-0004

PATIENT
  Age: 66 Year
  Weight: 95 kg

DRUGS (4)
  1. PHOSLO [Suspect]
     Active Substance: CALCIUM ACETATE
     Route: 048
  2. LIBERTY CYCLER SET [Concomitant]
  3. LIBERTY CYCLER [Concomitant]
     Active Substance: DEVICE
  4. DELFLEX [Concomitant]
     Active Substance: CALCIUM CHLORIDE\DEXTROSE MONOHYDRATE\MAGNESIUM CHLORIDE\SODIUM CHLORIDE\SODIUM LACTATE

REACTIONS (4)
  - Myocardial infarction [None]
  - Coronary artery disease [None]
  - Ischaemic cardiomyopathy [None]
  - Thrombocytopenia [None]

NARRATIVE: CASE EVENT DATE: 20130918
